FAERS Safety Report 19399129 (Version 1)
Quarter: 2021Q2

REPORT INFORMATION
  Report Type: Spontaneous
  Country: JP (occurrence: JP)
  Receive Date: 20210610
  Receipt Date: 20210610
  Transmission Date: 20210717
  Serious: Yes (Life-Threatening, Hospitalization)
  Sender: FDA-Public Use
  Company Number: JP-MYLANLABS-2021M1033338

PATIENT
  Age: 20 Month
  Sex: Female
  Weight: 10.3 kg

DRUGS (1)
  1. MAGNESIUM OXIDE. [Suspect]
     Active Substance: MAGNESIUM OXIDE
     Indication: CONSTIPATION
     Dosage: 200 MILLIGRAM, QD, ADMINISTERED IN DIVIDED DOSES
     Route: 048

REACTIONS (12)
  - Pupillary reflex impaired [Recovered/Resolved]
  - Hypermagnesaemia [Recovered/Resolved]
  - Unresponsive to stimuli [Recovered/Resolved]
  - Hyperglycaemia [Recovered/Resolved]
  - Coma [Recovered/Resolved]
  - Hyporeflexia [Recovered/Resolved]
  - Vomiting [Recovered/Resolved]
  - Toxicity to various agents [Recovered/Resolved]
  - Asthenia [Recovered/Resolved]
  - Hypotonia [Recovered/Resolved]
  - Depressed level of consciousness [Recovered/Resolved]
  - Leukocytosis [Recovered/Resolved]
